FAERS Safety Report 9169895 (Version 1)
Quarter: 2013Q1

REPORT INFORMATION
  Report Type: Spontaneous
  Country: US (occurrence: None)
  Receive Date: 20130314
  Receipt Date: 20130314
  Transmission Date: 20140127
  Serious: Yes (Other)
  Sender: FDA-Public Use
  Company Number: None

PATIENT
  Age: 75 Year
  Sex: Female
  Weight: 92.99 kg

DRUGS (1)
  1. LISINIPRIL 5MG [Suspect]
     Indication: HYPERTENSION
     Dosage: 1 DOSE DAILY PO
     Route: 048
     Dates: start: 20130212, end: 20130226

REACTIONS (7)
  - Musculoskeletal stiffness [None]
  - Myalgia [None]
  - Fatigue [None]
  - Headache [None]
  - Somnolence [None]
  - Asthenia [None]
  - Immobile [None]
